FAERS Safety Report 16675065 (Version 1)
Quarter: 2020Q3

REPORT INFORMATION
  Report Type: Report from Study
  Country: GB (occurrence: GB)
  Receive Date: 20190806
  Receipt Date: 20190806
  Transmission Date: 20201104
  Serious: Yes (Other)
  Sender: FDA-Public Use
  Company Number: GB-ROCHE-2363581

PATIENT
  Age: 45 Year
  Sex: Female
  Weight: 61 kg

DRUGS (1)
  1. ALECTINIB. [Suspect]
     Active Substance: ALECTINIB
     Indication: NON-SMALL CELL LUNG CANCER
     Route: 065

REACTIONS (2)
  - Maternal exposure during pregnancy [Unknown]
  - Abortion spontaneous [Unknown]

NARRATIVE: CASE EVENT DATE: 20190719
